FAERS Safety Report 17088962 (Version 1)
Quarter: 2019Q4

REPORT INFORMATION
  Report Type: Spontaneous
  Country: FR (occurrence: FR)
  Receive Date: 20191128
  Receipt Date: 20191128
  Transmission Date: 20200122
  Serious: Yes (Death)
  Sender: FDA-Public Use
  Company Number: FR-BIODELIVERY SCIENCES INTERNATIONAL-2019BDSI0946

PATIENT
  Age: 55 Year
  Sex: Female

DRUGS (5)
  1. FLUOXETINE [Suspect]
     Active Substance: FLUOXETINE HYDROCHLORIDE
     Indication: PRODUCT USED FOR UNKNOWN INDICATION
     Dosage: INCONNUE
     Route: 065
     Dates: start: 2018
  2. FENTANYL CITRATE. [Suspect]
     Active Substance: FENTANYL CITRATE
     Indication: PRODUCT USED FOR UNKNOWN INDICATION
     Dosage: INCONNUE
     Route: 065
     Dates: start: 2018
  3. OXAZEPAM. [Suspect]
     Active Substance: OXAZEPAM
     Indication: PRODUCT USED FOR UNKNOWN INDICATION
     Route: 005
     Dates: start: 2018
  4. ATENOLOL. [Suspect]
     Active Substance: ATENOLOL
     Indication: PRODUCT USED FOR UNKNOWN INDICATION
     Dosage: INCONNUE
     Route: 065
     Dates: start: 2018
  5. PREGABALIN. [Suspect]
     Active Substance: PREGABALIN
     Indication: PRODUCT USED FOR UNKNOWN INDICATION
     Dosage: INCONNUE
     Route: 065
     Dates: start: 2018

REACTIONS (1)
  - Depressed level of consciousness [Fatal]

NARRATIVE: CASE EVENT DATE: 201801
